FAERS Safety Report 10609850 (Version 1)
Quarter: 2014Q4

REPORT INFORMATION
  Report Type: Spontaneous
  Country: US (occurrence: None)
  Receive Date: 20141124
  Receipt Date: 20141124
  Transmission Date: 20150529
  Serious: Yes (Hospitalization)
  Sender: FDA-Public Use
  Company Number: IMP_08211_2014

PATIENT
  Age: 53 Year
  Sex: Female

DRUGS (2)
  1. RILUZOLE. [Suspect]
     Active Substance: RILUZOLE
     Indication: MAJOR DEPRESSION
  2. SERTRALINE [Concomitant]
     Active Substance: SERTRALINE HYDROCHLORIDE

REACTIONS (8)
  - Nausea [None]
  - Seizure [None]
  - Troponin I increased [None]
  - Amnestic disorder [None]
  - Rhabdomyolysis [None]
  - Dissociative fugue [None]
  - Amnesia [None]
  - Vomiting [None]
